FAERS Safety Report 5814533-4 (Version None)
Quarter: 2008Q3

REPORT INFORMATION
  Report Type: 
  Country: None (occurrence: None)
  Receive Date: 20080718
  Receipt Date: 20070625
  Transmission Date: 20090109
  Serious: No
  Sender: FDA-Public Use
  Company Number: US-KINGPHARMUSA00001-K200700798

PATIENT

DRUGS (4)
  1. LEVOXYL [Suspect]
     Dosage: 12.5 MCG, QD
     Route: 048
     Dates: start: 20070622
  2. HYDROCHLOROTHIAZIDE [Concomitant]
     Indication: HYPERTENSION
     Route: 048
  3. ASPIRIN [Concomitant]
     Route: 048
  4. EYE MEDICATIONS [Concomitant]
     Route: 031

REACTIONS (2)
  - DYSPHONIA [None]
  - OROPHARYNGEAL PAIN [None]
